FAERS Safety Report 8137667-0 (Version None)
Quarter: 2012Q1

REPORT INFORMATION
  Report Type: 
  Country: None (occurrence: None)
  Receive Date: 20120103
  Receipt Date: 20110927
  Transmission Date: 20120608
  Serious: No
  Sender: FDA-Public Use
  Company Number: AE-2011-001371

PATIENT
  Age: 58 Year
  Sex: Female
  Weight: 61.2356 kg

DRUGS (7)
  1. PEGASYS [Concomitant]
  2. PROZAC [Concomitant]
  3. LEVOTHROID [Concomitant]
  4. INCIVEK [Suspect]
     Dosage: 2250 MG (750 MG, 1 IN 8 HR), ORAL
     Route: 048
     Dates: start: 20110828
  5. ANASTROZOLE [Concomitant]
  6. RIBASPHERE [Concomitant]
  7. GABAPENTIN [Concomitant]

REACTIONS (8)
  - SOMNOLENCE [None]
  - RASH [None]
  - SKIN SENSITISATION [None]
  - PRURITUS [None]
  - HEADACHE [None]
  - ERYTHEMA [None]
  - FATIGUE [None]
  - DYSGEUSIA [None]
